FAERS Safety Report 8793663 (Version 1)
Quarter: 2012Q4

REPORT INFORMATION
  Report Type: 
  Country: US (occurrence: US)
  Receive Date: 20120917
  Receipt Date: 20120917
  Transmission Date: 20130627
  Serious: Yes (Other)
  Sender: FDA-Public Use
  Company Number: US-FOUGERA-2012FO001121

PATIENT
  Age: 66 Year
  Sex: Female
  Weight: 82.56 kg

DRUGS (11)
  1. IMIQUIMOD [Suspect]
     Indication: RASH PRURITIC
     Route: 061
     Dates: start: 20120522, end: 20120526
  2. ASA [Concomitant]
     Indication: CORONARY ARTERY DISEASE
     Route: 048
     Dates: start: 1995
  3. EFFIENT [Concomitant]
     Indication: ANTICOAGULANT THERAPY
     Route: 048
     Dates: start: 201108
  4. METOPROLOL [Concomitant]
     Indication: BLOOD PRESSURE
     Route: 048
     Dates: start: 2002
  5. NITROSTAT [Concomitant]
     Indication: CARDIAC DISORDER
     Route: 060
     Dates: start: 201008
  6. FAMOTIDINE [Concomitant]
     Indication: ABDOMINAL DISCOMFORT
     Route: 048
     Dates: start: 201108
  7. VYTORIN [Concomitant]
     Indication: BLOOD CHOLESTEROL
     Route: 048
  8. DIPHENHYDRAMINE [Concomitant]
     Indication: PRODUCT USED FOR UNKNOWN INDICATION
     Route: 048
  9. LORAZEPAM [Concomitant]
     Indication: PRODUCT USED FOR UNKNOWN INDICATION
     Route: 048
     Dates: start: 201201
  10. NITROGLYCERIN [Concomitant]
     Indication: PRODUCT USED FOR UNKNOWN INDICATION
     Route: 060
  11. NITROGLYCERIN [Concomitant]
     Indication: PRODUCT USED FOR UNKNOWN INDICATION

REACTIONS (11)
  - Angina pectoris [Recovered/Resolved]
  - Application site urticaria [Recovered/Resolved]
  - Off label use [Recovered/Resolved]
  - Heart rate increased [Recovered/Resolved]
  - Hypersensitivity [Recovered/Resolved]
  - Application site pain [Recovered/Resolved]
  - Myalgia [Recovered/Resolved]
  - Headache [Recovered/Resolved]
  - Pyrexia [Recovered/Resolved]
  - Influenza like illness [Recovered/Resolved]
  - Application site erythema [Recovered/Resolved]
